FAERS Safety Report 17876964 (Version 1)
Quarter: 2020Q2

REPORT INFORMATION
  Report Type: Report from Study
  Country: AT (occurrence: AT)
  Receive Date: 20200609
  Receipt Date: 20200609
  Transmission Date: 20200714
  Serious: Yes (Hospitalization)
  Sender: FDA-Public Use
  Company Number: AT-CELGENEUS-AUT-20200601407

PATIENT
  Age: 78 Year
  Sex: Female
  Weight: 54 kg

DRUGS (14)
  1. PF-04449913 [Suspect]
     Active Substance: GLASDEGIB
     Indication: ACUTE MYELOID LEUKAEMIA
     Route: 048
     Dates: start: 20190227, end: 20190402
  2. AZACITIDINE. [Suspect]
     Active Substance: AZACITIDINE
     Indication: ACUTE MYELOID LEUKAEMIA
     Dosage: 120 MILLIGRAM
     Route: 058
     Dates: start: 20190227
  3. OLEOVIT [Concomitant]
     Indication: OSTEOPOROSIS
     Route: 065
  4. AMPHO MORONAL [Concomitant]
     Active Substance: AMPHOTERICIN B
     Indication: INFECTION PROPHYLAXIS
     Route: 065
     Dates: start: 201902
  5. FOSINOPRIL [Concomitant]
     Active Substance: FOSINOPRIL
     Indication: HYPERTENSION
     Route: 065
  6. THROMBO ASS [Concomitant]
     Active Substance: ASPIRIN
     Indication: THROMBOSIS PROPHYLAXIS
     Route: 065
  7. NOXAFIL [Concomitant]
     Active Substance: POSACONAZOLE
     Indication: INFECTION
     Dosage: 300 MILLIGRAM
     Route: 048
     Dates: start: 20190404
  8. MEROPENEM. [Concomitant]
     Active Substance: MEROPENEM
     Indication: INFECTION
     Dosage: 6 GRAM
     Route: 041
     Dates: start: 20190406, end: 20190414
  9. ANAEROBEX [Concomitant]
     Active Substance: METRONIDAZOLE
     Indication: INFECTION
     Dosage: 1500 MILLIGRAM
     Route: 048
     Dates: start: 20190407, end: 20190408
  10. TAZONAM [Concomitant]
     Active Substance: TAZOBACTAM
     Indication: INFECTION
     Dosage: 4.5/18 G
     Route: 041
     Dates: start: 20190403, end: 20190406
  11. ZOFRAN [Concomitant]
     Active Substance: ONDANSETRON HYDROCHLORIDE
     Indication: PROPHYLAXIS OF NAUSEA AND VOMITING
     Route: 065
     Dates: start: 20190327, end: 20190401
  12. SODIUM CHLORIDE. [Concomitant]
     Active Substance: SODIUM CHLORIDE
     Indication: DIARRHOEA
     Dosage: 1500 MILLILITER
     Route: 041
     Dates: start: 20190401, end: 20190418
  13. OMEC [Concomitant]
     Active Substance: OMEPRAZOLE
     Indication: PROPHYLAXIS
     Route: 065
  14. GUTTALAX [Concomitant]
     Active Substance: SODIUM PICOSULFATE
     Indication: CONSTIPATION
     Route: 065

REACTIONS (1)
  - Circulatory collapse [Recovered/Resolved]

NARRATIVE: CASE EVENT DATE: 20190401
